FAERS Safety Report 14689939 (Version 1)
Quarter: 2018Q1

REPORT INFORMATION
  Report Type: Spontaneous
  Country: US (occurrence: US)
  Receive Date: 20180328
  Receipt Date: 20180328
  Transmission Date: 20180509
  Serious: No
  Sender: FDA-Public Use
  Company Number: US-TEVA-2018-US-873993

PATIENT
  Sex: Male

DRUGS (1)
  1. OCTREOTIDE ACETATE. [Suspect]
     Active Substance: OCTREOTIDE ACETATE
     Indication: GASTROINTESTINAL HAEMORRHAGE
     Dosage: 100 MCG/ML, 1 ML
     Route: 065

REACTIONS (2)
  - Dysstasia [Unknown]
  - Haemoglobin decreased [Unknown]
